FAERS Safety Report 13814605 (Version 1)
Quarter: 2017Q3

REPORT INFORMATION
  Report Type: Spontaneous
  Country: US (occurrence: US)
  Receive Date: 20170731
  Receipt Date: 20170731
  Transmission Date: 20171127
  Serious: No
  Sender: FDA-Public Use
  Company Number: US-SUN PHARMACEUTICAL INDUSTRIES LTD-2016US-130077

PATIENT
  Sex: Male

DRUGS (2)
  1. TESTOSTERONE. [Suspect]
     Active Substance: TESTOSTERONE
     Indication: PRODUCT USED FOR UNKNOWN INDICATION
     Dosage: 3/4 TO 1 ML EVERY 14 DAYS
     Route: 030
     Dates: start: 2016
  2. TESTOSTERONE. [Suspect]
     Active Substance: TESTOSTERONE
     Dosage: 3/4 TO 1 ML EVERY 14 DAYS
     Route: 030
     Dates: start: 2016

REACTIONS (2)
  - Drug administration error [Unknown]
  - Product deposit [Unknown]

NARRATIVE: CASE EVENT DATE: 2016
